FAERS Safety Report 6606753-6 (Version None)
Quarter: 2010Q1

REPORT INFORMATION
  Report Type: 
  Country: None (occurrence: None)
  Receive Date: 20100226
  Receipt Date: 20100219
  Transmission Date: 20100710
  Serious: Yes (Other)
  Sender: FDA-Public Use
  Company Number: US-ASTRAZENECA-2010SE07307

PATIENT
  Age: 56 Year
  Sex: Female
  Weight: 54.9 kg

DRUGS (12)
  1. ARIMIDEX [Suspect]
     Indication: NEOPLASM PROPHYLAXIS
     Route: 048
  2. MOTRIN IB [Interacting]
     Indication: PAIN
     Dosage: 800 TO 1600 MG (4 TO 8 PILLS) CAPLET A DAY
     Route: 048
     Dates: end: 20100115
  3. LEVOTHYROXINE [Concomitant]
     Indication: THYROID DISORDER
  4. LAMICTAL CD [Concomitant]
     Indication: BIPOLAR DISORDER
  5. LAMICTAL CD [Concomitant]
  6. ADDERALL 30 [Concomitant]
     Indication: MANIA
     Dosage: IN ONE DAY
  7. PROPRANOLOL [Concomitant]
     Indication: TREMOR
     Dosage: IN ONE DAY
  8. PROPRANOLOL [Concomitant]
     Indication: MANIA
     Dosage: IN ONE DAY
  9. ALPRAZOLAM [Concomitant]
     Indication: ANXIETY
     Dosage: ONE IN ONE DAY
  10. ALPRAZOLAM [Concomitant]
     Indication: MANIA
     Dosage: ONE IN ONE DAY
  11. SENOKOT [Concomitant]
     Indication: CONSTIPATION
     Dosage: THREE DOSES, FIVE IN ONE WEEK
  12. CALCIUM W/VIT D [Concomitant]

REACTIONS (4)
  - BONE DENSITY DECREASED [None]
  - DRUG INTERACTION [None]
  - MANIA [None]
  - TREMOR [None]
